FAERS Safety Report 7629764-0 (Version None)
Quarter: 2011Q3

REPORT INFORMATION
  Report Type: 
  Country: None (occurrence: None)
  Receive Date: 20110722
  Receipt Date: 20110708
  Transmission Date: 20111222
  Serious: Yes (Hospitalization)
  Sender: FDA-Public Use
  Company Number: US-ROCHE-790921

PATIENT
  Sex: Female
  Weight: 68.2 kg

DRUGS (2)
  1. ATENOLOL [Concomitant]
  2. CAPECITABINE [Suspect]
     Route: 048
     Dates: start: 20110601

REACTIONS (1)
  - PALPITATIONS [None]
